FAERS Safety Report 18688155 (Version 1)
Quarter: 2020Q4

REPORT INFORMATION
  Report Type: Spontaneous
  Country: US (occurrence: US)
  Receive Date: 20201230
  Receipt Date: 20201230
  Transmission Date: 20210114
  Serious: No
  Sender: FDA-Public Use
  Company Number: None

PATIENT
  Age: 76 Year
  Sex: Male
  Weight: 65.25 kg

DRUGS (9)
  1. SYNTHROID [Concomitant]
     Active Substance: LEVOTHYROXINE SODIUM
  2. HYDROXYZINE HCL [Suspect]
     Active Substance: HYDROXYZINE HYDROCHLORIDE
     Indication: PRURITUS
     Dosage: ?          QUANTITY:1 TABLET(S);?
     Route: 048
  3. VYZULTA [Concomitant]
     Active Substance: LATANOPROSTENE BUNOD
  4. COMBIGAN [Concomitant]
     Active Substance: BRIMONIDINE TARTRATE\TIMOLOL MALEATE
  5. LIPITUR [Concomitant]
  6. FISH OIL [Concomitant]
     Active Substance: FISH OIL
  7. INSULIN [Concomitant]
     Active Substance: INSULIN NOS
  8. VITAMINS [Concomitant]
     Active Substance: VITAMINS
  9. 81MG ASPERIN [Concomitant]

REACTIONS (3)
  - Insomnia [None]
  - Pruritus [None]
  - Palpitations [None]

NARRATIVE: CASE EVENT DATE: 20201228
